FAERS Safety Report 21599574 (Version 1)
Quarter: 2022Q4

REPORT INFORMATION
  Report Type: Report from Study
  Country: AU (occurrence: AU)
  Receive Date: 20221115
  Receipt Date: 20221115
  Transmission Date: 20230113
  Serious: Yes (Hospitalization)
  Sender: FDA-Public Use
  Company Number: AU-ABBVIE-4193778

PATIENT
  Age: 84 Year
  Sex: Male
  Weight: 68 kg

DRUGS (12)
  1. VENETOCLAX [Suspect]
     Active Substance: VENETOCLAX
     Indication: Acute myeloid leukaemia
     Route: 048
  2. VENETOCLAX [Suspect]
     Active Substance: VENETOCLAX
     Indication: Acute myeloid leukaemia
     Route: 048
     Dates: start: 20210506
  3. ROSUVASTATIN [Concomitant]
     Active Substance: ROSUVASTATIN
     Indication: Prophylaxis
  4. ASPIRIN [Concomitant]
     Active Substance: ASPIRIN
     Indication: Prophylaxis
     Dates: start: 20210601
  5. TRAMADOL [Concomitant]
     Active Substance: TRAMADOL
     Indication: Pain prophylaxis
     Dates: start: 20220624
  6. METOCLOPRAMIDE [Concomitant]
     Active Substance: METOCLOPRAMIDE
     Indication: Prophylaxis of nausea and vomiting
     Dates: start: 20210514
  7. POSACONAZOLE [Concomitant]
     Active Substance: POSACONAZOLE
     Indication: Antifungal prophylaxis
     Dates: start: 20211211
  8. VALACYCLOVIR HYDROCHLORIDE [Concomitant]
     Active Substance: VALACYCLOVIR HYDROCHLORIDE
     Indication: Antiviral prophylaxis
     Dates: start: 20211015
  9. Coloxyl Jenna [Concomitant]
     Indication: Constipation prophylaxis
     Dates: start: 20220624
  10. Piperacillin /tazobactum [Concomitant]
     Indication: Product used for unknown indication
     Dates: start: 20221106
  11. MIDOSTAURIN [Concomitant]
     Active Substance: MIDOSTAURIN
     Indication: Product used for unknown indication
     Dates: start: 20210516
  12. METOPROLOL [Concomitant]
     Active Substance: METOPROLOL
     Indication: Hypertension
     Dates: start: 20220629

REACTIONS (2)
  - Skin infection [Not Recovered/Not Resolved]
  - Cellulitis [Not Recovered/Not Resolved]

NARRATIVE: CASE EVENT DATE: 20221106
